FAERS Safety Report 5343570-1 (Version None)
Quarter: 2007Q2

REPORT INFORMATION
  Report Type: 
  Country: None (occurrence: None)
  Receive Date: 20070604
  Receipt Date: 20070522
  Transmission Date: 20071010
  Serious: Yes (Hospitalization)
  Sender: FDA-Public Use
  Company Number: TW-ELI_LILLY_AND_COMPANY-EWC991104979

PATIENT
  Age: 75 Year
  Sex: Male

DRUGS (8)
  1. ZYPREXA [Suspect]
     Indication: SCHIZOPHRENIA
     Dosage: 5 MG, DAILY (1/D)
     Route: 048
     Dates: start: 19991115, end: 19991120
  2. ARICEPT [Concomitant]
     Dosage: 1 UNK, DAILY (1/D)
     Route: 048
     Dates: start: 19991115, end: 19991120
  3. POTASSIUM ASCORBATE [Concomitant]
     Dosage: 1 MG, DAILY (1/D)
     Route: 048
     Dates: start: 19991115, end: 19991120
  4. ATIVAN [Concomitant]
     Dosage: 0.5 MG, 2/D
     Route: 048
     Dates: start: 19991115, end: 19991120
  5. SEROXAT [Concomitant]
     Dosage: 0.5 MG, DAILY (1/D)
     Route: 048
     Dates: start: 19991115, end: 19991120
  6. IMOVANE [Concomitant]
     Dosage: 1 MG, DAILY (1/D)
     Route: 048
     Dates: start: 19991115, end: 19991120
  7. ASPIRIN [Concomitant]
     Dosage: 100 MG, DAILY (1/D)
  8. CAPTOPRIL [Concomitant]
     Dosage: 25 MG, DAILY (1/D)

REACTIONS (8)
  - BRADYCARDIA [None]
  - CARDIOGENIC SHOCK [None]
  - DRUG INTERACTION [None]
  - HYPOTENSION [None]
  - HYPOTHERMIA [None]
  - LOSS OF CONSCIOUSNESS [None]
  - MIOSIS [None]
  - PALLOR [None]
